FAERS Safety Report 9276115 (Version 1)
Quarter: 2012Q4

REPORT INFORMATION
  Report Type: Spontaneous
  Country: US (occurrence: None)
  Receive Date: 20121109
  Receipt Date: 20121109
  Transmission Date: 20130627
  Serious: Yes (Death)
  Sender: FDA-Public Use
  Company Number: 2012S100675

PATIENT
  Age: 78 Year
  Sex: Female

DRUGS (4)
  1. CUBICIN [Suspect]
     Indication: TREATMENT FAILURE
  2. VANCOMYCIN [Concomitant]
  3. GENTAMICIN [Concomitant]
  4. RIFAMPICIN [Concomitant]

REACTIONS (1)
  - Device breakage [None]
